FAERS Safety Report 17349844 (Version 1)
Quarter: 2020Q1

REPORT INFORMATION
  Report Type: Spontaneous
  Country: US (occurrence: US)
  Receive Date: 20200130
  Receipt Date: 20200130
  Transmission Date: 20200409
  Serious: Yes (Other)
  Sender: FDA-Public Use
  Company Number: US-CHEPLA-C20200438

PATIENT
  Age: 45 Year
  Sex: Male

DRUGS (5)
  1. CEFTRIAXONE SODIUM. [Suspect]
     Active Substance: CEFTRIAXONE SODIUM
     Indication: STREPTOCOCCAL BACTERAEMIA
     Dosage: UNK, FOR 8 WEEKS
     Route: 042
  2. TACROLIMUS. [Suspect]
     Active Substance: TACROLIMUS
  3. SULFAMETHOXAZOLE AND TRIMETHOPRIM [Suspect]
     Active Substance: SULFAMETHOXAZOLE\TRIMETHOPRIM
  4. PREDNISONE. [Suspect]
     Active Substance: PREDNISONE
  5. GANCICLOVIR. [Suspect]
     Active Substance: GANCICLOVIR

REACTIONS (1)
  - Pharyngeal abscess [Unknown]
